FAERS Safety Report 12172498 (Version 1)
Quarter: 2016Q1

REPORT INFORMATION
  Report Type: Report from Study
  Country: CA (occurrence: CA)
  Receive Date: 20160311
  Receipt Date: 20160311
  Transmission Date: 20160526
  Serious: Yes (Hospitalization, Other)
  Sender: FDA-Public Use
  Company Number: CA-AMGEN-CANSL2016027520

PATIENT
  Age: 48 Year
  Sex: Female

DRUGS (4)
  1. FLUTAMIDE. [Concomitant]
     Active Substance: FLUTAMIDE
  2. ENBREL [Suspect]
     Active Substance: ETANERCEPT
     Dosage: 25 MG, UNK
     Route: 065
  3. CYMBALTA [Concomitant]
     Active Substance: DULOXETINE HYDROCHLORIDE
  4. ENBREL [Suspect]
     Active Substance: ETANERCEPT
     Indication: RHEUMATOID ARTHRITIS
     Dosage: UNK
     Route: 065
     Dates: start: 20150424

REACTIONS (9)
  - Gastric haemorrhage [Unknown]
  - Rash papular [Unknown]
  - Hormone level abnormal [Not Recovered/Not Resolved]
  - Erythema [Unknown]
  - Enzyme level abnormal [Not Recovered/Not Resolved]
  - Alanine aminotransferase increased [Not Recovered/Not Resolved]
  - Injection site reaction [Unknown]
  - Pain [Not Recovered/Not Resolved]
  - Hepatic enzyme increased [Not Recovered/Not Resolved]
